FAERS Safety Report 14584786 (Version 1)
Quarter: 2018Q1

REPORT INFORMATION
  Report Type: Spontaneous
  Country: ES (occurrence: ES)
  Receive Date: 20180301
  Receipt Date: 20180301
  Transmission Date: 20180509
  Serious: Yes (Other)
  Sender: FDA-Public Use
  Company Number: ES-ACCORD-063755

PATIENT
  Age: 33 Year
  Sex: Female

DRUGS (2)
  1. METHOTREXATE. [Suspect]
     Active Substance: METHOTREXATE
     Indication: B PRECURSOR TYPE ACUTE LEUKAEMIA
     Dates: start: 200911
  2. CYCLOPHOSPHAMIDE/CYCLOPHOSPHAMIDE MONOHYDRATE [Suspect]
     Active Substance: CYCLOPHOSPHAMIDE
     Indication: B PRECURSOR TYPE ACUTE LEUKAEMIA
     Dates: start: 200911

REACTIONS (11)
  - Skin disorder [None]
  - Urinary tract disorder [None]
  - Musculoskeletal disorder [None]
  - Premature menopause [None]
  - Respiratory disorder [None]
  - Premature menopause [Unknown]
  - Haematocolpos [None]
  - Liver disorder [None]
  - Multi-organ disorder [None]
  - Chronic graft versus host disease [None]
  - Oral disorder [None]

NARRATIVE: CASE EVENT DATE: 201006
